FAERS Safety Report 4733033-6 (Version None)
Quarter: 2005Q3

REPORT INFORMATION
  Report Type: 
  Country: None (occurrence: None)
  Receive Date: 20050801
  Receipt Date: 20050719
  Transmission Date: 20060218
  Serious: Yes (Hospitalization)
  Sender: FDA-Public Use
  Company Number: 2005093449

PATIENT
  Age: 57 Year
  Sex: Female
  Weight: 56 kg

DRUGS (20)
  1. HALCION [Suspect]
     Indication: INSOMNIA
     Dosage: 0.25 MG, ORAL
     Route: 048
     Dates: start: 20040415, end: 20050616
  2. SOLULACT S (SODIUM CHLORIDE COMPOUND INJECTION, SORBITOL) [Concomitant]
  3. URSODIOL [Concomitant]
  4. PROLMON (PROTOPORPHYRIN DISDODIUM) [Concomitant]
  5. COSPANON (FLOPROPIONE) [Concomitant]
  6. PURSENNID (SENNA LEAF) [Concomitant]
  7. PRIMPERAN TAB [Concomitant]
  8. LASIX [Concomitant]
  9. ALDACTONE [Concomitant]
  10. LACTULOSE [Concomitant]
  11. GASTER OD (FAMOTIDINE) [Concomitant]
  12. SESDEN (TIMEPIDIUM BROMIDE) [Concomitant]
  13. GASLON (IRSOGLADINE MALEATE) [Concomitant]
  14. GLUTATHIONE (GLUTATHIONE) [Concomitant]
  15. ADELAVIN (FLAVINE ADENINE DINUCLEOTIDE) [Concomitant]
  16. NEO-MINOPHAGEN C (GLYCYRRHIZIC ACID, AMMONIUM SALT) [Concomitant]
  17. MAC AMIN (ELECTOLYTES NOS) [Concomitant]
  18. KYLIT (XYLITOL) [Concomitant]
  19. MERCAZOLE (THIAMAZOLE) [Concomitant]
  20. ALOSENN (ACHILLEA, RUBIA ROOT TINCTURE, SENNA FRUIT, SENNA LEAF, TARAX [Concomitant]

REACTIONS (7)
  - ASTHENIA [None]
  - CHOKING SENSATION [None]
  - HYPOAESTHESIA [None]
  - HYPOAESTHESIA ORAL [None]
  - MALAISE [None]
  - PARAESTHESIA ORAL [None]
  - STOMATITIS [None]
